FAERS Safety Report 8806215 (Version 1)
Quarter: 2012Q4

REPORT INFORMATION
  Report Type: 
  Country: CA (occurrence: CA)
  Receive Date: 20120925
  Receipt Date: 20120925
  Transmission Date: 20130627
  Serious: Yes (Other)
  Sender: FDA-Public Use
  Company Number: PHHY2012CA082864

PATIENT

DRUGS (4)
  1. ACLASTA [Suspect]
     Indication: OSTEOPOROSIS
     Route: 042
     Dates: start: 20110923
  2. PRINZIDE [Concomitant]
  3. SYNTHROID [Concomitant]
  4. CALCIUM D [Concomitant]
     Dosage: 500 IU, BID

REACTIONS (1)
  - Renal colic [Recovered/Resolved]
